FAERS Safety Report 14497627 (Version 1)
Quarter: 2018Q1

REPORT INFORMATION
  Report Type: Spontaneous
  Country: JP (occurrence: JP)
  Receive Date: 20180207
  Receipt Date: 20180207
  Transmission Date: 20180509
  Serious: Yes (Other)
  Sender: FDA-Public Use
  Company Number: JP-CELGENEUS-JPN-20180200058

PATIENT
  Sex: Male

DRUGS (3)
  1. FLIVAS [Suspect]
     Active Substance: NAFTOPIDIL
     Indication: BENIGN PROSTATIC HYPERPLASIA
     Route: 065
  2. OTEZLA [Suspect]
     Active Substance: APREMILAST
     Route: 048
     Dates: start: 2017
  3. OTEZLA [Suspect]
     Active Substance: APREMILAST
     Indication: PRODUCT USED FOR UNKNOWN INDICATION
     Dosage: STARTER PACK
     Route: 048
     Dates: start: 201706, end: 2017

REACTIONS (8)
  - Abdominal distension [Unknown]
  - Diarrhoea [Not Recovered/Not Resolved]
  - Flatulence [Recovered/Resolved]
  - Back pain [Not Recovered/Not Resolved]
  - Decreased appetite [Unknown]
  - Inguinal hernia [Unknown]
  - Weight decreased [Unknown]
  - Faeces soft [Unknown]

NARRATIVE: CASE EVENT DATE: 2017
